FAERS Safety Report 7094787-X (Version None)
Quarter: 2010Q4

REPORT INFORMATION
  Report Type: 
  Country: None (occurrence: None)
  Receive Date: 20101110
  Receipt Date: 20101029
  Transmission Date: 20110411
  Serious: Yes (Hospitalization)
  Sender: FDA-Public Use
  Company Number: FR-GENENTECH-307665

PATIENT
  Sex: Female

DRUGS (5)
  1. MABTHERA [Suspect]
     Indication: CONNECTIVE TISSUE INFLAMMATION
     Dosage: 1 G, Q15D
     Route: 042
     Dates: start: 20100701, end: 20100716
  2. CORTANCYL [Suspect]
     Indication: PRODUCT USED FOR UNKNOWN INDICATION
     Dosage: 1 MG/KG, UNK
     Dates: start: 20090101
  3. CORTANCYL [Suspect]
     Dosage: UNK
     Dates: start: 20100427
  4. ACLASTA [Suspect]
     Indication: OSTEOPOROSIS PROPHYLAXIS
     Dosage: 5 MG, SINGLE
     Dates: start: 20100622, end: 20100629
  5. PLAQUENIL [Concomitant]
     Indication: PRODUCT USED FOR UNKNOWN INDICATION
     Dosage: UNK
     Dates: start: 20100427

REACTIONS (1)
  - INTERSTITIAL LUNG DISEASE [None]
